FAERS Safety Report 12885100 (Version 1)
Quarter: 2016Q4

REPORT INFORMATION
  Report Type: Spontaneous
  Country: IT (occurrence: IT)
  Receive Date: 20161026
  Receipt Date: 20161026
  Transmission Date: 20170207
  Serious: Yes (Hospitalization)
  Sender: FDA-Public Use
  Company Number: IT-AUROBINDO-AUR-APL-2016-13071

PATIENT
  Age: 75 Year
  Sex: Female

DRUGS (4)
  1. ANAFRANIL [Interacting]
     Active Substance: CLOMIPRAMINE HYDROCHLORIDE
     Indication: DEPRESSION
     Route: 048
  2. XANAX [Interacting]
     Active Substance: ALPRAZOLAM
     Indication: PANIC ATTACK
     Route: 048
  3. GABAPENTIN. [Suspect]
     Active Substance: GABAPENTIN
     Indication: EPILEPSY
     Route: 048
  4. TRITTICO [Interacting]
     Active Substance: TRAZODONE HYDROCHLORIDE
     Indication: DEPRESSION
     Route: 048

REACTIONS (5)
  - Fall [Recovering/Resolving]
  - Tremor [Recovering/Resolving]
  - Drug interaction [Recovering/Resolving]
  - Toxicity to various agents [Recovering/Resolving]
  - Balance disorder [Recovering/Resolving]

NARRATIVE: CASE EVENT DATE: 20151121
